FAERS Safety Report 5609503-5 (Version None)
Quarter: 2008Q1

REPORT INFORMATION
  Report Type: 
  Country: None (occurrence: None)
  Receive Date: 20080131
  Receipt Date: 20080122
  Transmission Date: 20080703
  Serious: Yes (Hospitalization, Other)
  Sender: FDA-Public Use
  Company Number: US-PFIZER INC-2007097905

PATIENT
  Sex: Female
  Weight: 77.1 kg

DRUGS (11)
  1. CHANTIX [Suspect]
     Indication: SMOKING CESSATION THERAPY
     Dosage: FREQ:INTERVAL: EVERYDAY
     Route: 048
  2. FLOVENT [Concomitant]
     Route: 055
  3. ALBUTEROL [Concomitant]
     Route: 055
  4. XANAX [Concomitant]
     Route: 048
  5. TOFRANIL [Concomitant]
  6. ALL OTHER THERAPEUTIC PRODUCTS [Concomitant]
  7. TIAZAC [Concomitant]
     Route: 048
  8. METFORMIN HCL [Concomitant]
     Route: 048
  9. SEROQUEL [Concomitant]
     Route: 048
  10. OTHER RESPIRATORY SYSTEM PRODUCTS [Concomitant]
  11. OXYGEN [Concomitant]

REACTIONS (13)
  - ABASIA [None]
  - ACTIVITIES OF DAILY LIVING IMPAIRED [None]
  - CONVULSION [None]
  - CYSTITIS [None]
  - DEPRESSION [None]
  - DIZZINESS [None]
  - HEART RATE INCREASED [None]
  - INFECTION [None]
  - INTENTIONAL DRUG MISUSE [None]
  - MUSCLE DISORDER [None]
  - MYALGIA [None]
  - NAUSEA [None]
  - PYREXIA [None]
